FAERS Safety Report 8472256-X (Version None)
Quarter: 2012Q2

REPORT INFORMATION
  Report Type: 
  Country: None (occurrence: None)
  Receive Date: 20120323
  Receipt Date: 20110819
  Transmission Date: 20120825
  Serious: Yes (Other)
  Sender: FDA-Public Use
  Company Number: 163-21880-11082599

PATIENT
  Age: 79 Year
  Sex: Female

DRUGS (4)
  1. REVLIMID [Suspect]
     Indication: MULTIPLE MYELOMA
     Dosage: 10 MG, 1 IN 1 D, DAILY X 21 DAYS, 7 DAYS OFF, PO
     Route: 048
     Dates: start: 20070606, end: 20071029
  2. REVLIMID [Suspect]
     Indication: MULTIPLE MYELOMA
     Dosage: 10 MG, 1 IN 1 D, DAILY X 21 DAYS, 7 DAYS OFF, PO
     Route: 048
     Dates: start: 20091005, end: 20110228
  3. REVLIMID [Suspect]
     Indication: MULTIPLE MYELOMA
     Dosage: 10 MG, 1 IN 1 D, DAILY X 21 DAYS, 7 DAYS OFF, PO
     Route: 048
     Dates: start: 20110624
  4. REVLIMID [Suspect]

REACTIONS (1)
  - NEUTROPHIL COUNT DECREASED [None]
